FAERS Safety Report 21545608 (Version 1)
Quarter: 2022Q4

REPORT INFORMATION
  Report Type: Spontaneous
  Country: US (occurrence: US)
  Receive Date: 20221103
  Receipt Date: 20221103
  Transmission Date: 20230113
  Serious: Yes (Other)
  Sender: FDA-Public Use
  Company Number: US-MLMSERVICE-20221018-3867549-1

PATIENT
  Age: 58 Year
  Sex: Female

DRUGS (2)
  1. HYDROXYCHLOROQUINE [Suspect]
     Active Substance: HYDROXYCHLOROQUINE
     Indication: Rheumatoid arthritis
     Dosage: 600 MILLIGRAM, ONCE A DAY
     Route: 065
  2. HYDROXYCHLOROQUINE [Suspect]
     Active Substance: HYDROXYCHLOROQUINE
     Dosage: 400 MILLIGRAM, ONCE A DAY
     Route: 065

REACTIONS (5)
  - Visual field defect [Unknown]
  - Acquired pigmented retinopathy [Unknown]
  - Maculopathy [Unknown]
  - Photosensitivity reaction [Unknown]
  - Incorrect dose administered [Unknown]
